FAERS Safety Report 11358812 (Version 1)
Quarter: 2015Q3

REPORT INFORMATION
  Report Type: Spontaneous
  Country: US (occurrence: None)
  Receive Date: 20150807
  Receipt Date: 20150807
  Transmission Date: 20151125
  Serious: Yes (Other)
  Sender: FDA-Public Use
  Company Number: None

PATIENT
  Age: 44 Year
  Sex: Male
  Weight: 131.54 kg

DRUGS (4)
  1. DULOXETINE 60MG TEVA [Suspect]
     Active Substance: DULOXETINE
     Indication: FIBROMYALGIA
     Dosage: 1 PILL ONCE DAILY
     Route: 048
     Dates: start: 20150715, end: 20150806
  2. LISINOPRIL. [Concomitant]
     Active Substance: LISINOPRIL
  3. NFEDICAL [Concomitant]
  4. NUVIGIL [Concomitant]
     Active Substance: ARMODAFINIL

REACTIONS (11)
  - Hyperhidrosis [None]
  - Visual impairment [None]
  - Thinking abnormal [None]
  - Paraesthesia [None]
  - Dizziness [None]
  - Pain [None]
  - Balance disorder [None]
  - Disturbance in attention [None]
  - Musculoskeletal pain [None]
  - Abdominal discomfort [None]
  - Product substitution issue [None]

NARRATIVE: CASE EVENT DATE: 20150806
